FAERS Safety Report 23117211 (Version 6)
Quarter: 2024Q2

REPORT INFORMATION
  Report Type: Spontaneous
  Country: PH (occurrence: PH)
  Receive Date: 20231027
  Receipt Date: 20240613
  Transmission Date: 20240715
  Serious: Yes (Other)
  Sender: FDA-Public Use
  Company Number: PH-AstraZeneca-2023A241091

PATIENT
  Sex: Male

DRUGS (17)
  1. TRASTUZUMAB DERUXTECAN [Suspect]
     Active Substance: TRASTUZUMAB DERUXTECAN
     Indication: Metastasis
     Dosage: UNK, ONCE EVERY 3 WK
     Route: 041
     Dates: start: 20230720
  2. TRASTUZUMAB DERUXTECAN [Suspect]
     Active Substance: TRASTUZUMAB DERUXTECAN
     Indication: Lung neoplasm malignant
     Dosage: UNK, ONCE EVERY 3 WK
     Route: 041
     Dates: start: 20230815
  3. TRASTUZUMAB DERUXTECAN [Suspect]
     Active Substance: TRASTUZUMAB DERUXTECAN
     Dosage: UNK, ONCE EVERY 3 WK
     Route: 041
     Dates: start: 20230914
  4. TRASTUZUMAB DERUXTECAN [Suspect]
     Active Substance: TRASTUZUMAB DERUXTECAN
     Dosage: UNK, ONCE EVERY 3 WK
     Route: 041
     Dates: start: 20231019
  5. TRASTUZUMAB DERUXTECAN [Suspect]
     Active Substance: TRASTUZUMAB DERUXTECAN
     Dosage: UNK, ONCE EVERY 3 WK
     Route: 041
     Dates: start: 20240125
  6. TRASTUZUMAB DERUXTECAN [Suspect]
     Active Substance: TRASTUZUMAB DERUXTECAN
     Dosage: UNK, ONCE EVERY 3 WK
     Route: 041
     Dates: start: 20240425
  7. TRASTUZUMAB DERUXTECAN [Suspect]
     Active Substance: TRASTUZUMAB DERUXTECAN
     Dosage: UNK, ONCE EVERY 3 WK
     Route: 041
  8. TRASTUZUMAB DERUXTECAN [Suspect]
     Active Substance: TRASTUZUMAB DERUXTECAN
     Dosage: UNK, ONCE EVERY 3 WK
     Route: 041
  9. TRASTUZUMAB DERUXTECAN [Suspect]
     Active Substance: TRASTUZUMAB DERUXTECAN
     Dosage: UNK, ONCE EVERY 3 WK
     Route: 041
  10. TRASTUZUMAB DERUXTECAN [Suspect]
     Active Substance: TRASTUZUMAB DERUXTECAN
     Dosage: UNK, ONCE EVERY 3 WK
     Route: 041
  11. LEVOPRONT [Concomitant]
     Indication: Cough
     Dosage: UNK, AS NEEDED
     Route: 048
     Dates: start: 202301
  12. LEVOPRONT [Concomitant]
     Dosage: UNK, AS NEEDED
     Route: 048
     Dates: start: 202311
  13. GLYCOAIR BREEZHALER [Concomitant]
     Indication: Oropharyngeal pain
     Dosage: UNK, AS NEEDED
     Route: 048
     Dates: start: 202301
  14. GLYCOAIR BREEZHALER [Concomitant]
     Dosage: UNK, AS NEEDED
     Route: 048
     Dates: start: 202311
  15. UNSPECIFIED INGREDIENT [Concomitant]
     Active Substance: UNSPECIFIED INGREDIENT
     Indication: Product used for unknown indication
     Dosage: UNK
     Route: 065
  16. CHLORPHENAMINE MALEATE;DEXTROMETHORPHAN HYDROBROMIDE;PHENYLPROPANOLAMI [Concomitant]
     Indication: Product used for unknown indication
     Dosage: UNK
     Route: 065
  17. LEVOCETIRIZINE [Concomitant]
     Active Substance: LEVOCETIRIZINE
     Indication: Cough
     Dosage: UNK, AS NEEDED
     Route: 048
     Dates: start: 202311

REACTIONS (7)
  - Pulmonary fibrosis [Unknown]
  - Atelectasis [Unknown]
  - Left ventricular dysfunction [Unknown]
  - Systolic dysfunction [Unknown]
  - Interstitial lung disease [Unknown]
  - Anxiety [Unknown]
  - Bronchiectasis [Unknown]
